FAERS Safety Report 9358745 (Version 1)
Quarter: 2013Q2

REPORT INFORMATION
  Report Type: Spontaneous
  Country: DE (occurrence: DE)
  Receive Date: 20130620
  Receipt Date: 20130620
  Transmission Date: 20140414
  Serious: Yes (Congenital Anomaly)
  Sender: FDA-Public Use
  Company Number: DE-MYLANLABS-2013S1012591

PATIENT
  Age: 0 Year
  Sex: Female
  Weight: 3.63 kg

DRUGS (4)
  1. FLUOXETINE [Suspect]
     Dosage: 80 [MG/D (2X 40) ]
     Route: 064
     Dates: start: 20071203, end: 20080122
  2. DIPIPERON [Suspect]
     Dosage: 40 [MG/D ]
     Route: 064
     Dates: start: 20071203, end: 20080122
  3. METHYLPHENIDATE [Suspect]
     Dosage: 40 [MG/D (2X20) ]
     Route: 064
     Dates: start: 20071203, end: 20080122
  4. FOLIO FORTE [Concomitant]
     Indication: PROPHYLAXIS OF NEURAL TUBE DEFECT
     Dosage: 0.8 [MG/D ]
     Route: 064

REACTIONS (5)
  - Exposure during pregnancy [Unknown]
  - Patent ductus arteriosus [Recovered/Resolved]
  - Atrial septal defect [Recovered/Resolved]
  - Neonatal respiratory distress syndrome [Recovered/Resolved]
  - Hypoglycaemia neonatal [Recovered/Resolved]
